FAERS Safety Report 17707050 (Version 1)
Quarter: 2020Q2

REPORT INFORMATION
  Report Type: Report from Study
  Country: US (occurrence: US)
  Receive Date: 20200424
  Receipt Date: 20200424
  Transmission Date: 20200714
  Serious: Yes (Death, Other)
  Sender: FDA-Public Use
  Company Number: NVSC2020US110589

PATIENT
  Age: 90 Year
  Sex: Female

DRUGS (1)
  1. ENTRESTO [Suspect]
     Active Substance: SACUBITRIL\VALSARTAN
     Indication: CARDIAC FAILURE
     Dosage: 1 DF, (97/103 MG) BID
     Route: 048
     Dates: start: 201606

REACTIONS (1)
  - Death [Fatal]

NARRATIVE: CASE EVENT DATE: 20180921
